FAERS Safety Report 6375780-9 (Version None)
Quarter: 2009Q3

REPORT INFORMATION
  Report Type: 
  Country: None (occurrence: None)
  Receive Date: 20090924
  Receipt Date: 20090915
  Transmission Date: 20100115
  Serious: Yes (Hospitalization)
  Sender: FDA-Public Use
  Company Number: GB-ABBOTT-09P-167-0595573-00

PATIENT

DRUGS (5)
  1. SEVOFLURANE [Suspect]
     Indication: MAINTENANCE OF ANAESTHESIA
     Route: 055
  2. MORPHINE SULFATE INJ [Suspect]
     Indication: PROCEDURAL PAIN
     Route: 030
  3. DICLOFENAC [Suspect]
     Indication: PROCEDURAL PAIN
     Route: 054
  4. HARTMANN'S SOLUTION [Concomitant]
     Indication: DRUG USE FOR UNKNOWN INDICATION
  5. NITROUS OXIDE [Concomitant]
     Indication: MAINTENANCE OF ANAESTHESIA
     Route: 055

REACTIONS (2)
  - PAIN [None]
  - SWELLING [None]
